FAERS Safety Report 17874017 (Version 3)
Quarter: 2022Q2

REPORT INFORMATION
  Report Type: Spontaneous
  Country: JP (occurrence: JP)
  Receive Date: 20200609
  Receipt Date: 20220624
  Transmission Date: 20220721
  Serious: Yes (Hospitalization, Other)
  Sender: FDA-Public Use
  Company Number: JP-VIIV HEALTHCARE ULC-JP2020JPN094397

PATIENT

DRUGS (30)
  1. JULUCA [Suspect]
     Active Substance: DOLUTEGRAVIR SODIUM\RILPIVIRINE HYDROCHLORIDE
     Indication: HIV infection
     Dosage: 1 DF, QD
     Route: 048
     Dates: start: 20190214, end: 20200311
  2. TIVICAY [Suspect]
     Active Substance: DOLUTEGRAVIR SODIUM
     Indication: HIV infection
     Dosage: 50 MG, QD
     Route: 048
     Dates: start: 20140513, end: 20190213
  3. TIVICAY [Suspect]
     Active Substance: DOLUTEGRAVIR SODIUM
     Dosage: 50 MG, QD
     Route: 048
     Dates: start: 20200312, end: 20200408
  4. PIFELTRO [Concomitant]
     Active Substance: DORAVIRINE
     Indication: HIV infection
     Dosage: 100 MG, QD
     Dates: start: 20200312
  5. ISENTRESS [Concomitant]
     Active Substance: RALTEGRAVIR POTASSIUM
     Indication: HIV infection
     Dosage: 1200 MG, QD
     Dates: start: 20200409
  6. AZILVA TABLETS [Concomitant]
     Indication: Hypertension
     Dosage: 20 MG, QD
     Dates: start: 20191121, end: 20191218
  7. AMLODIPINE BESYLATE\AZILSARTAN [Concomitant]
     Active Substance: AMLODIPINE BESYLATE\AZILSARTAN
     Indication: Hypertension
     Dosage: 1 DF, QD
     Dates: start: 20191219
  8. VONOPRAZAN FUMARATE [Concomitant]
     Active Substance: VONOPRAZAN FUMARATE
     Indication: Gastric ulcer
     Dosage: 10 MG, QD
     Dates: start: 20200312
  9. MEILAX TABLETS [Concomitant]
     Indication: Depressive symptom
     Dosage: 1 MG, QD
  10. LORMETAZEPAM [Concomitant]
     Active Substance: LORMETAZEPAM
     Indication: Insomnia
     Dosage: 2 MG, QD
  11. RESLIN TABLETS [Concomitant]
     Indication: Depression
     Dosage: 100 MG, QD
  12. AMOBAN TABLETS [Concomitant]
     Indication: Insomnia
     Dosage: 10 MG, QD
  13. PAXIL CR [Concomitant]
     Active Substance: PAROXETINE HYDROCHLORIDE
     Indication: Depression
     Dosage: 12.5 MG, QD
     Route: 048
  14. PAXIL CR [Concomitant]
     Active Substance: PAROXETINE HYDROCHLORIDE
     Dosage: 12.5 MG
     Route: 048
     Dates: start: 20170525
  15. PAXIL [Concomitant]
     Active Substance: PAROXETINE HYDROCHLORIDE
     Indication: Depression
     Dosage: 10 MG, QD
     Route: 048
  16. BROTIZOLAM [Concomitant]
     Active Substance: BROTIZOLAM
     Indication: Insomnia
     Dosage: 0.25 MG
     Dates: start: 20170622
  17. VALPROATE SODIUM [Concomitant]
     Active Substance: VALPROATE SODIUM
     Indication: Bipolar I disorder
     Dosage: 200 MG, BID
  18. XYZAL [Concomitant]
     Active Substance: LEVOCETIRIZINE DIHYDROCHLORIDE
     Indication: Eczema
     Dosage: 5 MG, QD
     Route: 048
  19. XYZAL [Concomitant]
     Active Substance: LEVOCETIRIZINE DIHYDROCHLORIDE
     Indication: Dermatitis
     Dosage: 5 MG
     Route: 048
  20. BENPROPERINE PHOSPHATE [Concomitant]
     Active Substance: BENPROPERINE PHOSPHATE
     Indication: Bronchitis
     Dosage: 20 MG, TID
  21. CARBOCYSTEINE [Concomitant]
     Active Substance: CARBOCYSTEINE
     Indication: Bronchitis
     Dosage: 500 MG, TID
  22. CRAVIT TABLETS [Concomitant]
     Indication: Bronchitis
     Dosage: 500 MG, QD
  23. MONTELUKAST SODIUM [Concomitant]
     Active Substance: MONTELUKAST SODIUM
     Indication: Rhinitis allergic
     Dosage: 10 MG, QD
  24. HUSCODE [Concomitant]
     Active Substance: CHLORPHENIRAMINE MALEATE\DIHYDROCODEINE PHOSPHATE\METHYLEPHEDRINE HYDROCHLORIDE, DL-
     Indication: Bronchitis
     Dosage: 3 DF
  25. Augmentin 125SS [Concomitant]
     Dosage: 1 DF, TID
  26. SAWACILLIN CAPSULES 250 [Concomitant]
     Indication: Bronchitis
     Dosage: 250 MG, TID
  27. CALONAL [Concomitant]
     Active Substance: ACETAMINOPHEN
     Indication: Pyrexia
     Dosage: 500 MG
  28. NEOSTELIN GREEN MOUTHWASH SOLUTION [Concomitant]
     Dosage: UNK
  29. BETAMETHASONE BUTYRATE PROPIONATE [Concomitant]
     Active Substance: BETAMETHASONE BUTYRATE PROPIONATE
     Dosage: UNK
  30. HIRUDOID SOFT OINTMENT [Concomitant]
     Dosage: UNK

REACTIONS (1)
  - Renal tubular disorder [Recovered/Resolved]

NARRATIVE: CASE EVENT DATE: 20200213
